FAERS Safety Report 9130017 (Version 2)
Quarter: 2013Q1

REPORT INFORMATION
  Report Type: Spontaneous
  Country: CA (occurrence: CA)
  Receive Date: 20130228
  Receipt Date: 20130321
  Transmission Date: 20140127
  Serious: Yes (Death, Hospitalization, Other)
  Sender: FDA-Public Use
  Company Number: CA-BAXTER-2013BAX006694

PATIENT
  Age: 81 Year
  Sex: Male

DRUGS (2)
  1. DIANEAL PD4 SOLUTION WITH 1.5% DEXTROSE AND 2.5 MEQ/L CALCIUM [Suspect]
     Indication: PERITONEAL DIALYSIS
     Route: 033
     Dates: end: 20130223
  2. DIANEAL PD4 SOLUTION WITH 1.5% DEXTROSE AND 2.5 MEQ/L CALCIUM [Suspect]
     Indication: PERITONEAL DIALYSIS

REACTIONS (12)
  - Death [Fatal]
  - Muscular weakness [Unknown]
  - Fall [Unknown]
  - Hip fracture [Recovering/Resolving]
  - Cardiac disorder [Unknown]
  - Cholelithiasis [Recovering/Resolving]
  - Peritonitis [Not Recovered/Not Resolved]
  - Heart rate increased [Unknown]
  - Blood pressure decreased [Unknown]
  - Weaning failure [Unknown]
  - Gallbladder perforation [Recovering/Resolving]
  - General physical health deterioration [Unknown]
